FAERS Safety Report 7191826-2 (Version None)
Quarter: 2010Q4

REPORT INFORMATION
  Report Type: 
  Country: None (occurrence: None)
  Receive Date: 20101223
  Receipt Date: 20101209
  Transmission Date: 20110411
  Serious: Yes (Other)
  Sender: FDA-Public Use
  Company Number: PHHY2010JP59775

PATIENT
  Sex: Female
  Weight: 46 kg

DRUGS (13)
  1. AFINITOR [Suspect]
     Indication: METASTATIC RENAL CELL CARCINOMA
     Dosage: 10 MG/DAY
     Route: 048
     Dates: start: 20100513, end: 20100520
  2. AFINITOR [Suspect]
     Dosage: 5 MG/DAY
     Route: 048
     Dates: start: 20100521, end: 20100624
  3. AFINITOR [Suspect]
     Dosage: 5 MG/DAY
     Route: 048
     Dates: start: 20100715, end: 20100923
  4. AMLODIN [Concomitant]
     Dosage: 5 MG, UNK
     Route: 048
     Dates: end: 20100923
  5. ADALAT CC [Concomitant]
     Dosage: 20 MG, UNK
     Route: 048
     Dates: end: 20100923
  6. BLOPRESS [Concomitant]
     Dosage: 8 MG, UNK
     Route: 048
     Dates: end: 20100923
  7. LIPIDIL [Concomitant]
     Dosage: 1 DF, UNK
     Route: 048
     Dates: end: 20100923
  8. TAKEPRON [Concomitant]
     Indication: PROPHYLAXIS
     Dosage: 15 MG, UNK
     Route: 048
     Dates: end: 20100923
  9. PREDONINE [Concomitant]
     Dosage: 5 MG, UNK
     Route: 048
     Dates: end: 20100923
  10. AMOBAN [Concomitant]
     Indication: METASTATIC RENAL CELL CARCINOMA
     Dosage: 7.5 DF, UNK
     Route: 048
     Dates: end: 20100923
  11. GLYCYRON [Concomitant]
     Indication: METASTATIC RENAL CELL CARCINOMA
     Dosage: 150 MG, UNK
     Route: 048
     Dates: end: 20100923
  12. FERROUS CITRATE [Concomitant]
     Indication: PROPHYLAXIS
     Dosage: 50 MG, UNK
     Route: 048
     Dates: start: 20100617, end: 20100923
  13. THYRADIN S [Concomitant]
     Dosage: 2 DF, UNK
     Route: 048
     Dates: start: 20090108, end: 20100923

REACTIONS (4)
  - HAEMOGLOBIN DECREASED [None]
  - INTESTINAL OBSTRUCTION [None]
  - MALAISE [None]
  - MALIGNANT NEOPLASM PROGRESSION [None]
